FAERS Safety Report 19421410 (Version 4)
Quarter: 2021Q3

REPORT INFORMATION
  Report Type: Report from Study
  Country: US (occurrence: US)
  Receive Date: 20210615
  Receipt Date: 20210910
  Transmission Date: 20211014
  Serious: No
  Sender: FDA-Public Use
  Company Number: US-B.I. PHARMACEUTICALS,INC./RIDGEFIELD-2021-BI-107522

PATIENT
  Age: 63 Year
  Sex: Female

DRUGS (3)
  1. OFEV [Suspect]
     Active Substance: NINTEDANIB
     Indication: IDIOPATHIC PULMONARY FIBROSIS
     Dosage: OFEV DOSE 200MG DAILY
     Route: 048
     Dates: start: 20210526, end: 202108
  2. OFEV [Suspect]
     Active Substance: NINTEDANIB
     Indication: INTERSTITIAL LUNG DISEASE
  3. OFEV [Suspect]
     Active Substance: NINTEDANIB
     Indication: SARCOIDOSIS

REACTIONS (11)
  - Diarrhoea [Unknown]
  - Flatulence [Unknown]
  - Cough [Recovering/Resolving]
  - Sarcoidosis [Unknown]
  - Diarrhoea [Not Recovered/Not Resolved]
  - Back pain [Not Recovered/Not Resolved]
  - Gastrointestinal disorder [Unknown]
  - Adverse event [Unknown]
  - Abdominal pain lower [Not Recovered/Not Resolved]
  - Abdominal pain upper [Unknown]
  - Nausea [Not Recovered/Not Resolved]

NARRATIVE: CASE EVENT DATE: 20210605
